FAERS Safety Report 7962173-3 (Version None)
Quarter: 2011Q4

REPORT INFORMATION
  Report Type: 
  Country: None (occurrence: None)
  Receive Date: 20111121
  Receipt Date: 20110920
  Transmission Date: 20120403
  Serious: No
  Sender: FDA-Public Use
  Company Number: 1000024102

PATIENT
  Age: 44 Year
  Sex: Male

DRUGS (2)
  1. VIIBRYD [Suspect]
     Indication: DEPRESSION
     Dosage: 10 MG (10 MG, 1 IN 1 D), ORAL
     Route: 048
     Dates: start: 20110906, end: 20110912
  2. VIIBRYD [Suspect]
     Indication: ANXIETY
     Dosage: 10 MG (10 MG, 1 IN 1 D), ORAL
     Route: 048
     Dates: start: 20110906, end: 20110912

REACTIONS (9)
  - DIZZINESS [None]
  - SWELLING FACE [None]
  - TOOTHACHE [None]
  - FATIGUE [None]
  - DYSGEUSIA [None]
  - HEADACHE [None]
  - DRUG INTERACTION [None]
  - URTICARIA [None]
  - SKIN ULCER [None]
